FAERS Safety Report 23819811 (Version 2)
Quarter: 2024Q2

REPORT INFORMATION
  Report Type: Spontaneous
  Country: AR (occurrence: AR)
  Receive Date: 20240506
  Receipt Date: 20240513
  Transmission Date: 20240716
  Serious: Yes (Hospitalization, Other)
  Sender: FDA-Public Use
  Company Number: AR-002147023-NVSC2024AR094526

PATIENT
  Age: 55 Year
  Sex: Female

DRUGS (2)
  1. TEGRETOL [Suspect]
     Active Substance: CARBAMAZEPINE
     Indication: Epilepsy
     Dosage: 400 MG
     Route: 065
  2. PHENOBARBITAL SODIUM [Concomitant]
     Active Substance: PHENOBARBITAL SODIUM
     Indication: Product used for unknown indication
     Dosage: UNK
     Route: 065

REACTIONS (20)
  - Malaise [Unknown]
  - Appendicitis [Unknown]
  - Seizure [Unknown]
  - Deafness [Unknown]
  - Upper limb fracture [Unknown]
  - Hand fracture [Unknown]
  - Ovarian fibroma [Unknown]
  - Movement disorder [Unknown]
  - Limb injury [Unknown]
  - Dry mouth [Unknown]
  - Eye movement disorder [Unknown]
  - Swelling [Unknown]
  - Paraesthesia [Unknown]
  - Pain [Unknown]
  - Nervousness [Unknown]
  - Anxiety [Unknown]
  - Headache [Unknown]
  - Fatigue [Unknown]
  - Product dose omission issue [Unknown]
  - Fall [Unknown]
